FAERS Safety Report 20463206 (Version 2)
Quarter: 2022Q2

REPORT INFORMATION
  Report Type: Spontaneous
  Country: US (occurrence: US)
  Receive Date: 20220211
  Receipt Date: 20220407
  Transmission Date: 20220721
  Serious: No
  Sender: FDA-Public Use
  Company Number: US-TEVA-2022-US-2000571

PATIENT
  Age: 63 Year
  Sex: Male
  Weight: 66.7 kg

DRUGS (16)
  1. AZILECT [Suspect]
     Active Substance: RASAGILINE MESYLATE
     Indication: Parkinson^s disease
     Dosage: AT 06 AM
     Route: 065
     Dates: end: 20211108
  2. GOCOVRI [Suspect]
     Active Substance: AMANTADINE
     Indication: Dyskinesia
     Dosage: 137 MILLIGRAM DAILY; 1X/DAY AT BEDTIME
     Route: 048
     Dates: start: 20210630, end: 20210706
  3. GOCOVRI [Suspect]
     Active Substance: AMANTADINE
     Dosage: 274 MILLIGRAM DAILY; 1X/DAY AT BEDTIME, AT 10 PM
     Route: 048
     Dates: start: 20210707, end: 20211107
  4. GOCOVRI [Suspect]
     Active Substance: AMANTADINE
     Dosage: 137 MILLIGRAM DAILY; 1X/DAY AT BEDTIME
     Route: 048
     Dates: start: 20211108, end: 202111
  5. GOCOVRI [Suspect]
     Active Substance: AMANTADINE
     Dosage: 274 MILLIGRAM DAILY; 1X/DAY AT BEDTIME
     Route: 048
     Dates: start: 202111
  6. LEVODOPA [Concomitant]
     Active Substance: LEVODOPA
  7. MELATONIN [Concomitant]
     Active Substance: MELATONIN
  8. ZINC [Concomitant]
     Active Substance: ZINC
  9. unspecified Parkinson^s meds [Concomitant]
  10. OXYBUTYNIN [Concomitant]
     Active Substance: OXYBUTYNIN
     Dosage: AT 06 PM
  11. ENTACAPONE [Concomitant]
     Active Substance: ENTACAPONE
     Dosage: AT 06 AM, 10 AM, 02 PM, 06 PM, 08.30 PM
  12. Carbidopa.levodopa [Concomitant]
     Dosage: 25-100 MG, AT 06 AM, 10 AM, 02 PM, 06 PM, 08.30 PM (0.5)
  13. Carbidopa.levodopa [Concomitant]
     Dosage: 50-200 MG, AT 6 AM, 08.30 PM
  14. Requip ER [Concomitant]
     Dosage: AT 06 PM
  15. CLONAZEPAM [Concomitant]
     Active Substance: CLONAZEPAM
     Dosage: AT 10 PM
  16. SILODOSIN [Concomitant]
     Active Substance: SILODOSIN
     Dosage: AT 06.00 HOURS

REACTIONS (3)
  - Hypertension [Recovered/Resolved]
  - Device maintenance issue [Unknown]
  - Procedural hypertension [Recovered/Resolved]

NARRATIVE: CASE EVENT DATE: 20210101
